FAERS Safety Report 25149741 (Version 2)
Quarter: 2025Q2

REPORT INFORMATION
  Report Type: Spontaneous
  Country: BE (occurrence: BE)
  Receive Date: 20250402
  Receipt Date: 20250415
  Transmission Date: 20250716
  Serious: Yes (Hospitalization)
  Sender: AMGEN
  Company Number: BE-ROCHE-10000230853

PATIENT
  Age: 42 Year
  Sex: Female
  Weight: 50.4 kg

DRUGS (5)
  1. BEVACIZUMAB [Suspect]
     Active Substance: BEVACIZUMAB
     Indication: Ovarian cancer
     Dosage: DOSE(S): 10 MG/KG, 4X AUCLAST DOSE PRIOR TO SAE: 20 FEB 2025
     Route: 040
     Dates: start: 20250103
  2. CARBOPLATIN [Suspect]
     Active Substance: CARBOPLATIN
     Indication: Ovarian cancer
     Dosage: DOSE: 5X AUCLAST DOSE PRIOR TO SAE: 06 FEB 2025
     Route: 040
     Dates: start: 20250103
  3. DOXORUBICIN [Suspect]
     Active Substance: DOXORUBICIN
     Indication: Ovarian cancer
     Dosage: DOSE(S): 30 MG/M^2LAST DOSE PRIOR TO SAE: 06/FEB/2025
     Route: 040
     Dates: start: 20250103
  4. DAFALGAN [Concomitant]
     Active Substance: ACETAMINOPHEN
     Indication: Abdominal pain
     Route: 065
     Dates: start: 20241129
  5. Romy [Concomitant]

REACTIONS (2)
  - Anaemia [Recovered/Resolved]
  - Thrombocytopenia [Recovered/Resolved]

NARRATIVE: CASE EVENT DATE: 20250222
